FAERS Safety Report 20708999 (Version 1)
Quarter: 2022Q2

REPORT INFORMATION
  Report Type: Spontaneous
  Country: US (occurrence: None)
  Receive Date: 20220413
  Receipt Date: 20220413
  Transmission Date: 20220720
  Serious: No
  Sender: FDA-Public Use
  Company Number: None

PATIENT
  Age: 76 Year
  Sex: Female

DRUGS (1)
  1. SOFOSBUVIR AND VELPATASVIR [Suspect]
     Active Substance: SOFOSBUVIR\VELPATASVIR
     Dosage: 400-100MG DAILY ORAL
     Route: 048
     Dates: start: 202204

REACTIONS (3)
  - Sinusitis [None]
  - Vertigo [None]
  - Ear pain [None]

NARRATIVE: CASE EVENT DATE: 20220413
